FAERS Safety Report 16869650 (Version 2)
Quarter: 2019Q4

REPORT INFORMATION
  Report Type: Spontaneous
  Country: US (occurrence: US)
  Receive Date: 20190930
  Receipt Date: 20191202
  Transmission Date: 20200122
  Serious: No
  Sender: FDA-Public Use
  Company Number: US-SA-2019SA269351

PATIENT
  Age: 57 Year
  Sex: Female

DRUGS (1)
  1. KEVZARA [Suspect]
     Active Substance: SARILUMAB
     Indication: RHEUMATOID ARTHRITIS
     Dosage: 200 MG, QOW
     Route: 058
     Dates: start: 20190821

REACTIONS (8)
  - Nausea [Unknown]
  - Retching [Unknown]
  - Tongue disorder [Unknown]
  - Vomiting [Unknown]
  - Dyspnoea [Unknown]
  - Stress [Unknown]
  - Unevaluable event [Unknown]
  - Pain [Unknown]

NARRATIVE: CASE EVENT DATE: 2019
